FAERS Safety Report 8976439 (Version 1)
Quarter: 2012Q4

REPORT INFORMATION
  Report Type: 
  Country: US (occurrence: US)
  Receive Date: 20121219
  Receipt Date: 20121219
  Transmission Date: 20130627
  Serious: No
  Sender: FDA-Public Use
  Company Number: US-AMGEN-USASP2012057652

PATIENT
  Age: 62 Year
  Sex: Female
  Weight: 94.79 kg

DRUGS (9)
  1. PROLIA [Suspect]
     Indication: OSTEOPOROSIS POSTMENOPAUSAL
     Dosage: 60 mg, q6mo
     Route: 058
     Dates: start: 20120907
  2. AROMASIN [Concomitant]
     Indication: BREAST CANCER
     Dosage: 25 mg, qd
     Route: 048
     Dates: start: 201106
  3. SIMVASTATIN [Concomitant]
     Dosage: 40 mg, qd
     Route: 048
  4. CYMBALTA [Concomitant]
     Dosage: 60 mg, qd
     Route: 048
  5. TOPIRAMATE [Concomitant]
     Dosage: 75 mg, qd
     Route: 048
  6. FIORINAL WITH CODEINE [Concomitant]
     Dosage: UNK UNK, prn
  7. VITAMIN D /00107901/ [Concomitant]
  8. CALCIUM [Concomitant]
  9. PROTONIX [Concomitant]
     Dosage: 40 mg, qd
     Route: 048

REACTIONS (1)
  - Back pain [Recovered/Resolved]
